FAERS Safety Report 4350789-5 (Version None)
Quarter: 2004Q2

REPORT INFORMATION
  Report Type: 
  Country: None (occurrence: None)
  Receive Date: 20040427
  Receipt Date: 20040412
  Transmission Date: 20050107
  Serious: Yes (Hospitalization)
  Sender: FDA-Public Use
  Company Number: 2004-BP-02910YA

PATIENT
  Age: 80 Year
  Sex: Male

DRUGS (9)
  1. HARNAL (TAMSULOSIN) [Suspect]
     Indication: BENIGN PROSTATIC HYPERPLASIA
     Dosage: 0.2 MG (0.2 MG, QD), PO
     Route: 048
     Dates: start: 20020112, end: 20040405
  2. LIPITOR [Suspect]
     Indication: HYPERLIPIDAEMIA
     Dosage: 10 MG (10 MG QD), PO
     Route: 048
     Dates: start: 19980608, end: 20040405
  3. ASPIRIN [Suspect]
     Indication: CEREBRAL INFARCTION
     Dosage: 100 MG (100 MG, 10 MG QD), PO
     Route: 048
     Dates: start: 20031204, end: 20040405
  4. ETIZOLAM (ETIZOLAM) [Concomitant]
  5. AMITRIPTYLINE HYDROCHLORIDE [Concomitant]
  6. SULPIRIDE (SULPIRIDE) [Concomitant]
  7. ALOSENN (ALOSENN) [Concomitant]
  8. TRIAZOLAM [Concomitant]
  9. RILMAZAFONE (RILMAZAFONE) [Concomitant]

REACTIONS (11)
  - ABDOMINAL PAIN [None]
  - BLOOD PRESSURE DIASTOLIC DECREASED [None]
  - BLOOD PRESSURE SYSTOLIC INCREASED [None]
  - BODY TEMPERATURE INCREASED [None]
  - CHILLS [None]
  - HEADACHE [None]
  - HEART RATE INCREASED [None]
  - LYMPHOCYTE COUNT DECREASED [None]
  - NAUSEA [None]
  - PLATELET COUNT DECREASED [None]
  - TREMOR [None]
